FAERS Safety Report 22308173 (Version 1)
Quarter: 2023Q2

REPORT INFORMATION
  Report Type: Spontaneous
  Country: JP (occurrence: JP)
  Receive Date: 20230511
  Receipt Date: 20230511
  Transmission Date: 20230721
  Serious: Yes (Other)
  Sender: FDA-Public Use
  Company Number: JP-PFIZER INC-PV202300074487

PATIENT
  Age: 33 Year
  Sex: Female

DRUGS (4)
  1. LORAZEPAM [Interacting]
     Active Substance: LORAZEPAM
     Indication: Depression
     Route: 048
  2. ALPRAZOLAM [Interacting]
     Active Substance: ALPRAZOLAM
     Indication: Depression
     Dosage: UNK
     Route: 048
  3. LEXAPRO [Interacting]
     Active Substance: ESCITALOPRAM OXALATE
     Indication: Depression
     Route: 048
  4. MIDAZOLAM [Interacting]
     Active Substance: MIDAZOLAM
     Indication: Sedative therapy
     Dosage: 13 MG
     Route: 042

REACTIONS (6)
  - Cardiovascular insufficiency [Unknown]
  - Respiratory depression [Unknown]
  - Drug level below therapeutic [Unknown]
  - Therapy change [Unknown]
  - Drug interaction [Unknown]
  - Sedation complication [Unknown]
